FAERS Safety Report 17885396 (Version 2)
Quarter: 2020Q2

REPORT INFORMATION
  Report Type: Spontaneous
  Country: US (occurrence: US)
  Receive Date: 20200611
  Receipt Date: 20200619
  Transmission Date: 20200714
  Serious: Yes (Other)
  Sender: FDA-Public Use
  Company Number: US-BRACCO-2020US02310

PATIENT
  Age: 66 Year
  Sex: Female

DRUGS (13)
  1. GABAPENTIN. [Concomitant]
     Active Substance: GABAPENTIN
     Dosage: 600 MG TAB
     Route: 048
  2. ISOVUE 300 [Concomitant]
     Active Substance: IOPAMIDOL
     Indication: COMPUTERISED TOMOGRAM SPINE
     Dosage: 50 ML, SINGLE
  3. ISOVUE-M 200 [Concomitant]
     Active Substance: IOPAMIDOL
     Dosage: 20 ML, SINGLE
  4. LIDOCAINE. [Concomitant]
     Active Substance: LIDOCAINE
     Dosage: 0.5 ML
     Dates: start: 20180818
  5. ERGOCALCIFEROL. [Concomitant]
     Active Substance: ERGOCALCIFEROL
     Dosage: 1250 MG
  6. AMITRIPTYLINE [Concomitant]
     Active Substance: AMITRIPTYLINE
     Dosage: 75 MG TAB
     Route: 048
  7. MAGNESIUM OXIDE. [Concomitant]
     Active Substance: MAGNESIUM OXIDE
     Dosage: 400 MG
  8. MULTIHANCE [Suspect]
     Active Substance: GADOBENATE DIMEGLUMINE
     Indication: MAGNETIC RESONANCE IMAGING
     Dosage: UNK UNK, SINGLE
  9. ISOVUE-M 200 [Concomitant]
     Active Substance: IOPAMIDOL
     Dosage: 20 ML, SINGLE
     Dates: start: 20180818, end: 20180818
  10. LIDOCAINE. [Concomitant]
     Active Substance: LIDOCAINE
     Dosage: 0.5 ML
  11. VERAPAMIL HCL [Concomitant]
     Active Substance: VERAPAMIL HYDROCHLORIDE
     Dosage: 180 MG
  12. ISOVUE-M 300 [Concomitant]
     Active Substance: IOPAMIDOL
     Dosage: 15 ML, SINGLE
     Dates: start: 20170829, end: 20170829
  13. PROHANCE [Suspect]
     Active Substance: GADOTERIDOL
     Indication: MAGNETIC RESONANCE IMAGING
     Dosage: UNK UNK, SINGLE
     Dates: start: 20170829, end: 20170829

REACTIONS (17)
  - Post inflammatory pigmentation change [Not Recovered/Not Resolved]
  - Palpitations [Not Recovered/Not Resolved]
  - Memory impairment [Not Recovered/Not Resolved]
  - Muscle swelling [Not Recovered/Not Resolved]
  - Burning sensation [Not Recovered/Not Resolved]
  - Myalgia [Not Recovered/Not Resolved]
  - Muscle contractions involuntary [Not Recovered/Not Resolved]
  - Skin disorder [Not Recovered/Not Resolved]
  - Pain [Not Recovered/Not Resolved]
  - Pharyngeal swelling [Not Recovered/Not Resolved]
  - Rash [Not Recovered/Not Resolved]
  - Skin hypertrophy [Not Recovered/Not Resolved]
  - Skin discolouration [Not Recovered/Not Resolved]
  - Skin swelling [Not Recovered/Not Resolved]
  - Dysphonia [Not Recovered/Not Resolved]
  - Formication [Not Recovered/Not Resolved]
  - Skin discharge [Not Recovered/Not Resolved]

NARRATIVE: CASE EVENT DATE: 2018
